FAERS Safety Report 9162171 (Version 1)
Quarter: 2013Q1

REPORT INFORMATION
  Report Type: Spontaneous
  Country: NO (occurrence: None)
  Receive Date: 20130222
  Receipt Date: 20130222
  Transmission Date: 20140127
  Serious: Yes (Hospitalization, Other)
  Sender: FDA-Public Use
  Company Number: AUR-APL-2013-01456

PATIENT
  Age: 80 Year
  Sex: Female

DRUGS (10)
  1. SIMVASTATIN (SIMVASTATIN) [Suspect]
     Indication: PRODUCT USED FOR UNKNOWN INDICATION
     Route: 048
  2. ERYTHROMYCIN (ERYTHROMYCIN) [Suspect]
     Indication: BRONCHITIS
     Route: 048
     Dates: start: 201212
  3. PREDNISOLON [Concomitant]
  4. ATACAND PLUS (BLOPRESS PLUS) [Concomitant]
  5. FURIX (FUROSEMIDE) [Concomitant]
  6. METOPROLOL SANDOZ (METOPROLOL TARTRATE) [Concomitant]
  7. MAREVAN (WARFARIN SODIUM) [Concomitant]
  8. ZANIDIP (LERCANIDIPINE HYDROCHLORIDE) [Concomitant]
  9. CALCIGRAN FORTE (LEKOVIT CA) [Concomitant]
  10. FOSAMAX (ALENDRONATE SODIUM) [Concomitant]

REACTIONS (8)
  - Myalgia [None]
  - General physical health deterioration [None]
  - Drug interaction [None]
  - Drug level increased [None]
  - Renal failure [None]
  - Blood creatine phosphokinase increased [None]
  - Alanine aminotransferase increased [None]
  - Aspartate aminotransferase increased [None]
